FAERS Safety Report 5821104-2 (Version None)
Quarter: 2008Q3

REPORT INFORMATION
  Report Type: 
  Country: None (occurrence: None)
  Receive Date: 20080724
  Receipt Date: 20080714
  Transmission Date: 20090109
  Serious: Yes (Hospitalization)
  Sender: FDA-Public Use
  Company Number: US-WATSON-2008-04236

PATIENT
  Sex: Male
  Weight: 68.481 kg

DRUGS (10)
  1. NORCO [Suspect]
     Indication: DRUG USE FOR UNKNOWN INDICATION
     Dosage: ^7.5/350 MG^
     Route: 048
     Dates: start: 20080505, end: 20080525
  2. AG-013, 736 (AG013, 736) [Suspect]
     Indication: COLORECTAL CANCER
     Dosage: 5 MG, BID
     Route: 048
     Dates: start: 20080515
  3. AVASTIN [Suspect]
     Indication: COLORECTAL CANCER
     Dosage: 2 MG/KG, 1 IN 2 WK
     Route: 042
     Dates: start: 20080515
  4. OXALIPLATIN [Suspect]
     Indication: DRUG USE FOR UNKNOWN INDICATION
     Dosage: 150 MG, UNKNOWN
     Route: 042
     Dates: start: 20080515, end: 20080515
  5. LEUCOVORIN CALCIUM [Suspect]
     Indication: DRUG USE FOR UNKNOWN INDICATION
     Dosage: 720 MG, UNKNOWN
     Route: 042
     Dates: start: 20080515, end: 20080515
  6. FLUOROURACIL [Suspect]
     Indication: DRUG USE FOR UNKNOWN INDICATION
     Dosage: 720 MG, UNKNOWN
     Route: 042
     Dates: start: 20080515, end: 20080515
  7. FLUOROURACIL [Suspect]
     Dosage: 4300 MG, CONTINUOUS
     Route: 042
     Dates: start: 20080515, end: 20080515
  8. ALOXI [Suspect]
     Indication: DRUG USE FOR UNKNOWN INDICATION
     Dosage: 25 MCG, UNKNOWN
     Route: 042
     Dates: start: 20080515, end: 20080515
  9. LASIX [Suspect]
     Indication: DRUG USE FOR UNKNOWN INDICATION
     Dosage: UNK
     Route: 048
     Dates: start: 20080501, end: 20080525
  10. DEXAMETHASONE [Concomitant]
     Indication: DRUG USE FOR UNKNOWN INDICATION
     Dosage: 5 MG, UNKNOWN
     Route: 042
     Dates: start: 20080515, end: 20080515

REACTIONS (2)
  - CONSTIPATION [None]
  - DEHYDRATION [None]
